FAERS Safety Report 13602782 (Version 2)
Quarter: 2017Q2

REPORT INFORMATION
  Report Type: Spontaneous
  Country: FR (occurrence: FR)
  Receive Date: 20170601
  Receipt Date: 20170608
  Transmission Date: 20170830
  Serious: Yes (Other)
  Sender: FDA-Public Use
  Company Number: FR-ELI_LILLY_AND_COMPANY-FR201705011727

PATIENT
  Age: 38 Year
  Sex: Female

DRUGS (9)
  1. ZYPREXA [Suspect]
     Active Substance: OLANZAPINE
     Indication: BIPOLAR DISORDER
     Dosage: 7.5 MG, DAILY
     Route: 065
     Dates: start: 20111026, end: 20120711
  2. THERALENE [Suspect]
     Active Substance: TRIMEPRAZINE
     Indication: BIPOLAR DISORDER
     Dosage: 20 GTT, DAILY
     Route: 065
     Dates: start: 20111026
  3. EFFEXOR [Suspect]
     Active Substance: VENLAFAXINE HYDROCHLORIDE
     Indication: BIPOLAR DISORDER
     Dosage: 75 MG, DAILY
     Route: 065
     Dates: start: 20111026, end: 20120711
  4. TERALITHE [Suspect]
     Active Substance: LITHIUM CARBONATE
     Dosage: 8 DF, DAILY
     Route: 065
     Dates: end: 20120711
  5. STILNOX [Suspect]
     Active Substance: ZOLPIDEM TARTRATE
     Indication: BIPOLAR DISORDER
     Dosage: 10 MG, DAILY
     Route: 065
     Dates: start: 20111026, end: 20120711
  6. TERALITHE [Suspect]
     Active Substance: LITHIUM CARBONATE
     Dosage: 6 DF, DAILY
     Route: 065
     Dates: start: 201205
  7. STILNOX [Suspect]
     Active Substance: ZOLPIDEM TARTRATE
     Dosage: 5 MG, DAILY
     Route: 065
     Dates: end: 20120711
  8. TERALITHE [Suspect]
     Active Substance: LITHIUM CARBONATE
     Indication: BIPOLAR DISORDER
     Dosage: 8 DF, DAILY
     Route: 065
     Dates: start: 201108
  9. THERALENE [Suspect]
     Active Substance: TRIMEPRAZINE
     Dosage: 5 GTT, DAILY
     Route: 065
     Dates: end: 20120711

REACTIONS (3)
  - Maternal exposure during pregnancy [Unknown]
  - Polyhydramnios [Unknown]
  - Bulimia nervosa [Unknown]

NARRATIVE: CASE EVENT DATE: 20111026
